FAERS Safety Report 20478137 (Version 2)
Quarter: 2022Q2

REPORT INFORMATION
  Report Type: Spontaneous
  Country: US (occurrence: None)
  Receive Date: 20220216
  Receipt Date: 20220409
  Transmission Date: 20220721
  Serious: Yes (Other)
  Sender: FDA-Public Use
  Company Number: US-ROCHE-3021205

PATIENT
  Age: 44 Year
  Sex: Female
  Weight: 86.7 kg

DRUGS (24)
  1. ACTEMRA [Suspect]
     Active Substance: TOCILIZUMAB
     Indication: Acute respiratory failure
     Dosage: STRENGTH: 20MG/ML
     Route: 042
     Dates: start: 20220106, end: 20220106
  2. ACTEMRA [Suspect]
     Active Substance: TOCILIZUMAB
     Indication: COVID-19
  3. ALBUTEROL [Concomitant]
     Active Substance: ALBUTEROL
     Dates: start: 20220107
  4. ALBUTEROL\IPRATROPIUM [Concomitant]
     Active Substance: ALBUTEROL\IPRATROPIUM
     Dates: start: 20220104
  5. AZITHROMYCIN [Concomitant]
     Active Substance: AZITHROMYCIN
     Dates: start: 20220104
  6. BENZONATATE [Concomitant]
     Active Substance: BENZONATATE
     Dates: start: 20220104
  7. BENZONATATE [Concomitant]
     Active Substance: BENZONATATE
     Dates: start: 20220104
  8. CEFTRIAXONE [Concomitant]
     Active Substance: CEFTRIAXONE
     Dates: start: 20220104
  9. CODEINE\GUAIFENESIN [Concomitant]
     Active Substance: CODEINE\GUAIFENESIN
     Dates: start: 20220123
  10. DEXAMETHASONE [Concomitant]
     Active Substance: DEXAMETHASONE
     Dates: start: 20220104
  11. DICLOFENAC [Concomitant]
     Active Substance: DICLOFENAC
     Route: 061
     Dates: start: 20220127
  12. GUAIFENESIN [Concomitant]
     Active Substance: GUAIFENESIN
     Dates: start: 20220104
  13. HEPARIN [Concomitant]
     Active Substance: HEPARIN SODIUM
     Dates: start: 20220128
  14. LIDOCAINE [Concomitant]
     Active Substance: LIDOCAINE
     Route: 061
     Dates: start: 20220127
  15. MORPHINE [Concomitant]
     Active Substance: MORPHINE
     Dates: start: 20220124
  16. ONDANSETRON [Concomitant]
     Active Substance: ONDANSETRON
     Dates: start: 20220104
  17. PANTOPRAZOLE [Concomitant]
     Active Substance: PANTOPRAZOLE
     Dates: start: 20220107
  18. PHENOL [Concomitant]
     Active Substance: PHENOL
     Route: 061
     Dates: start: 20220110
  19. PREDNISONE [Concomitant]
     Active Substance: PREDNISONE
     Dates: start: 20220122
  20. CEFEPIME [Concomitant]
     Active Substance: CEFEPIME HYDROCHLORIDE
     Dates: start: 20220124, end: 20220126
  21. ENOXAPARIN [Concomitant]
     Active Substance: ENOXAPARIN
     Dates: start: 20220105, end: 20220128
  22. METHYLPREDNISOLONE [Concomitant]
     Active Substance: METHYLPREDNISOLONE
     Dates: start: 20220108, end: 20220124
  23. REMDESIVIR [Concomitant]
     Active Substance: REMDESIVIR
     Dates: start: 20220104, end: 20220108
  24. VANCOMYCIN [Concomitant]
     Active Substance: VANCOMYCIN
     Dates: start: 20220122, end: 20220126

REACTIONS (7)
  - Sinus tachycardia [Unknown]
  - Off label use [Unknown]
  - Anxiety [Unknown]
  - Pulmonary embolism [Unknown]
  - Type 2 diabetes mellitus [Unknown]
  - Constipation [Unknown]
  - Thrombosis prophylaxis [Unknown]

NARRATIVE: CASE EVENT DATE: 20220125
